FAERS Safety Report 7110270-7 (Version None)
Quarter: 2010Q4

REPORT INFORMATION
  Report Type: 
  Country: None (occurrence: None)
  Receive Date: 20101117
  Receipt Date: 20101117
  Transmission Date: 20110411
  Serious: Yes (Other)
  Sender: FDA-Public Use
  Company Number: None

PATIENT
  Age: 77 Year
  Sex: Female
  Weight: 63.5036 kg

DRUGS (2)
  1. DEXILANT [Suspect]
     Indication: EROSIVE OESOPHAGITIS
     Dosage: 60 MG TWICE DAILY ORAL
     Route: 048
  2. DEXILANT [Suspect]
     Indication: GASTROOESOPHAGEAL REFLUX DISEASE
     Dosage: 60 MG TWICE DAILY ORAL
     Route: 048

REACTIONS (2)
  - ERYTHEMA [None]
  - SWELLING FACE [None]
